FAERS Safety Report 25415990 (Version 2)
Quarter: 2025Q3

REPORT INFORMATION
  Report Type: Spontaneous
  Country: US (occurrence: US)
  Receive Date: 20250610
  Receipt Date: 20250811
  Transmission Date: 20251021
  Serious: No
  Sender: ELI LILLY AND COMPANY
  Company Number: US-ELI_LILLY_AND_COMPANY-US202505025735

PATIENT
  Age: 67 Year
  Sex: Female
  Weight: 151.93 kg

DRUGS (1)
  1. EMGALITY [Suspect]
     Active Substance: GALCANEZUMAB-GNLM
     Indication: Migraine
     Dosage: 120 MG, MONTHLY (1/M) (1ML/EVERY 30 DAYS)
     Route: 058
     Dates: start: 2023, end: 20250620

REACTIONS (4)
  - Rash erythematous [Recovered/Resolved]
  - Injection site urticaria [Recovered/Resolved]
  - Rash erythematous [Recovered/Resolved]
  - Injection site urticaria [Recovered/Resolved]

NARRATIVE: CASE EVENT DATE: 20250201
